FAERS Safety Report 22158787 (Version 4)
Quarter: 2023Q2

REPORT INFORMATION
  Report Type: Report from Study
  Country: CA (occurrence: CA)
  Receive Date: 20230331
  Receipt Date: 20230407
  Transmission Date: 20230722
  Serious: Yes (Hospitalization, Other)
  Sender: FDA-Public Use
  Company Number: CA-JNJFOC-20230257824

PATIENT
  Age: 49 Year
  Sex: Male
  Weight: 111 kg

DRUGS (1)
  1. REMICADE [Suspect]
     Active Substance: INFLIXIMAB
     Indication: Crohn^s disease
     Dosage: START DATE: 24/FEB/2023
     Route: 041
     Dates: start: 20230223

REACTIONS (12)
  - Heart rate irregular [Recovering/Resolving]
  - Ocular hyperaemia [Recovering/Resolving]
  - Pallor [Recovering/Resolving]
  - Cough [Recovering/Resolving]
  - Chills [Recovering/Resolving]
  - Blood pressure decreased [Recovering/Resolving]
  - Nausea [Recovering/Resolving]
  - Infusion related reaction [Recovering/Resolving]
  - Erythema [Recovering/Resolving]
  - Hyperhidrosis [Recovering/Resolving]
  - Dyspnoea [Recovered/Resolved]
  - Therapy non-responder [Unknown]

NARRATIVE: CASE EVENT DATE: 20230224
